FAERS Safety Report 4648402-2 (Version None)
Quarter: 2005Q2

REPORT INFORMATION
  Report Type: 
  Country: None (occurrence: None)
  Receive Date: 20050427
  Receipt Date: 20050414
  Transmission Date: 20051028
  Serious: Yes (Hospitalization)
  Sender: FDA-Public Use
  Company Number: HQWYE025114APR05

PATIENT
  Age: 77 Year
  Sex: Female

DRUGS (5)
  1. AMIODARONE HCL [Suspect]
     Dosage: INTRAVENOUS
     Route: 042
     Dates: start: 20030317, end: 20030318
  2. METOPROLOL TARTRATE [Suspect]
     Dosage: 47.5 MG 1X PER 1 DAY, ORAL
     Route: 048
     Dates: start: 20030317, end: 20030318
  3. GLICLAZIDE (GLICLAZIDE) [Concomitant]
  4. AMOXICILLIN W/CLAVULANATE POTASSIUM (AMOXICILLIN/CLAVULANATE POTASSIUM [Concomitant]
  5. BUDESONIDE [Concomitant]

REACTIONS (5)
  - BRONCHOSPASM [None]
  - DRUG INTERACTION [None]
  - HALLUCINATION, VISUAL [None]
  - PALLOR [None]
  - PURPURA [None]
